FAERS Safety Report 18884714 (Version 1)
Quarter: 2021Q1

REPORT INFORMATION
  Report Type: Spontaneous
  Country: GB (occurrence: US)
  Receive Date: 20210212
  Receipt Date: 20210212
  Transmission Date: 20210420
  Serious: No
  Sender: FDA-Public Use
  Company Number: GB-AIMMUNE THERAPEUTICS, INC.-2021AIMT00050

PATIENT

DRUGS (1)
  1. PALFORZIA [Suspect]
     Active Substance: PEANUT
     Indication: FOOD ALLERGY
     Dosage: UNK
     Route: 048

REACTIONS (3)
  - Abdominal pain upper [Recovered/Resolved]
  - Throat tightness [Recovered/Resolved]
  - Stomatitis [Recovered/Resolved]
